FAERS Safety Report 6756364-7 (Version None)
Quarter: 2010Q2

REPORT INFORMATION
  Report Type: 
  Country: None (occurrence: None)
  Receive Date: 20100604
  Receipt Date: 20100525
  Transmission Date: 20101027
  Serious: Yes (Other)
  Sender: FDA-Public Use
  Company Number: US-ROCHE-706966

PATIENT
  Sex: Female
  Weight: 64.4 kg

DRUGS (1)
  1. CAPECITABINE [Suspect]
     Indication: BREAST CANCER
     Dosage: DOSE AND FREQUENCY: 2000 MG AM/PM
     Route: 048
     Dates: start: 20100429, end: 20100505

REACTIONS (5)
  - ASTHENIA [None]
  - DYSPNOEA [None]
  - LACRIMATION INCREASED [None]
  - OESOPHAGEAL STENOSIS [None]
  - RASH GENERALISED [None]
